FAERS Safety Report 8598125-2 (Version None)
Quarter: 2012Q3

REPORT INFORMATION
  Report Type: 
  Country: None (occurrence: None)
  Receive Date: 20120802
  Receipt Date: 20120719
  Transmission Date: 20120928
  Serious: Yes (Hospitalization)
  Sender: FDA-Public Use
  Company Number: ALK_02764_2012

PATIENT
  Age: 27 Year
  Sex: Female
  Weight: 56.6996 kg

DRUGS (6)
  1. SINEQUAN [Concomitant]
  2. VIVITROL [Suspect]
     Indication: DRUG DEPENDENCE
     Dosage: (INTRAMUSCULAR)
     Route: 030
     Dates: start: 20120714
  3. NEURONTIN [Concomitant]
  4. SEROQUEL [Concomitant]
  5. IBUPROFEN [Concomitant]
  6. FLEXERIL [Concomitant]

REACTIONS (8)
  - TREMOR [None]
  - INJECTION SITE INDURATION [None]
  - DYSPHEMIA [None]
  - INCOHERENT [None]
  - INJECTION SITE PAIN [None]
  - FALL [None]
  - INJECTION SITE REACTION [None]
  - DRUG SCREEN FALSE POSITIVE [None]
